FAERS Safety Report 9464444 (Version 4)
Quarter: 2013Q4

REPORT INFORMATION
  Report Type: Spontaneous
  Country: US (occurrence: US)
  Receive Date: 20130819
  Receipt Date: 20131022
  Transmission Date: 20140711
  Serious: No
  Sender: FDA-Public Use
  Company Number: US-PFIZER INC-2013239075

PATIENT
  Age: 66 Year
  Sex: Female
  Weight: 68.03 kg

DRUGS (6)
  1. ATORVASTATIN CALCIUM [Suspect]
     Indication: BLOOD CHOLESTEROL ABNORMAL
     Dosage: UNKNOWN DOSE DAILY
  2. LIPITOR [Suspect]
     Indication: BLOOD CHOLESTEROL INCREASED
     Dosage: 10 MG, ONCE A DAY
     Route: 048
     Dates: start: 20080709, end: 2008
  3. METOPROLOL [Concomitant]
     Indication: HYPERTENSION
     Dosage: 25 MG, TWO TIMES A DAY
  4. PANTOPRAZOLE [Concomitant]
     Indication: GASTRIC DISORDER
     Dosage: 40 MG, ONCE A DAY
     Route: 048
  5. HCTZ [Concomitant]
     Dosage: 25 MG, ONCE A DAY
  6. LORAZEPAM [Concomitant]
     Dosage: 1 MG, ONCE A DAY

REACTIONS (5)
  - Muscle disorder [Unknown]
  - Drug ineffective [Unknown]
  - Aspartate aminotransferase increased [Recovered/Resolved]
  - Alanine aminotransferase increased [Recovered/Resolved]
  - Muscle spasms [Unknown]
